FAERS Safety Report 20184941 (Version 1)
Quarter: 2021Q4

REPORT INFORMATION
  Report Type: Spontaneous
  Country: JP (occurrence: JP)
  Receive Date: 20211214
  Receipt Date: 20211214
  Transmission Date: 20220303
  Serious: Yes (Hospitalization, Disabling)
  Sender: FDA-Public Use
  Company Number: JP-ABBVIE-21K-087-3988322-00

PATIENT
  Age: 48 Year
  Sex: Female
  Weight: 65 kg

DRUGS (7)
  1. LEVOBUPIVACAINE HYDROCHLORIDE [Suspect]
     Active Substance: LEVOBUPIVACAINE HYDROCHLORIDE
     Indication: Induction of anaesthesia
     Dosage: POPSCAINE 0.25% INJ. BAG 250 MG/ 100 ML (LEVOBUPIVACAINE HYDROCHLORIDE)
     Route: 008
     Dates: start: 20210525, end: 20210525
  2. LEVOBUPIVACAINE HYDROCHLORIDE [Suspect]
     Active Substance: LEVOBUPIVACAINE HYDROCHLORIDE
     Indication: Anaesthesia
     Route: 008
     Dates: start: 20210525, end: 20210525
  3. LEVOBUPIVACAINE HYDROCHLORIDE [Suspect]
     Active Substance: LEVOBUPIVACAINE HYDROCHLORIDE
     Route: 008
     Dates: start: 20210525, end: 20210526
  4. LEVOBUPIVACAINE HYDROCHLORIDE [Suspect]
     Active Substance: LEVOBUPIVACAINE HYDROCHLORIDE
     Dosage: 2-FOLD DILUTION 3 ML/H
     Route: 008
     Dates: start: 20210525, end: 20210526
  5. LIDOCAINE [Suspect]
     Active Substance: LIDOCAINE
     Indication: Postoperative analgesia
     Route: 008
     Dates: start: 20210525, end: 20210525
  6. LIDOCAINE [Suspect]
     Active Substance: LIDOCAINE
     Indication: Epidural anaesthesia
  7. ROPIVACAINE HYDROCHLORIDE [Suspect]
     Active Substance: ROPIVACAINE HYDROCHLORIDE
     Indication: Product used for unknown indication
     Route: 065
     Dates: start: 20210526, end: 20210527

REACTIONS (2)
  - Paraparesis [Not Recovered/Not Resolved]
  - Cauda equina syndrome [Unknown]

NARRATIVE: CASE EVENT DATE: 20210526
